FAERS Safety Report 22384310 (Version 1)
Quarter: 2023Q2

REPORT INFORMATION
  Report Type: Spontaneous
  Country: KW (occurrence: KW)
  Receive Date: 20230530
  Receipt Date: 20230530
  Transmission Date: 20230722
  Serious: Yes (Hospitalization, Other)
  Sender: FDA-Public Use
  Company Number: KW-AMNEAL PHARMACEUTICALS-2023-AMRX-01851

PATIENT
  Age: 43 Year
  Sex: Female

DRUGS (2)
  1. DICLOFENAC SODIUM [Suspect]
     Active Substance: DICLOFENAC SODIUM
     Indication: Product used for unknown indication
     Dosage: 75 MILLIGRAM, 100 TABS
     Route: 065
  2. CHLOROXYLENOL\EDETIC ACID\TRICLOSAN [Suspect]
     Active Substance: CHLOROXYLENOL\EDETIC ACID\TRICLOSAN
     Indication: Product used for unknown indication
     Dosage: UNK
     Route: 042

REACTIONS (5)
  - Deep vein thrombosis [Unknown]
  - Cardiac arrest [Unknown]
  - Compartment syndrome [Unknown]
  - Pulmonary embolism [Recovered/Resolved]
  - Renal failure [Recovered/Resolved]
